FAERS Safety Report 18663434 (Version 6)
Quarter: 2022Q3

REPORT INFORMATION
  Report Type: Report from Study
  Country: ES (occurrence: ES)
  Receive Date: 20201224
  Receipt Date: 20220921
  Transmission Date: 20221027
  Serious: Yes (Other)
  Sender: FDA-Public Use
  Company Number: ES-SHIRE-ES201945987

PATIENT
  Age: 65 Year
  Sex: Male

DRUGS (41)
  1. TEDUGLUTIDE [Suspect]
     Active Substance: TEDUGLUTIDE
     Indication: Short-bowel syndrome
     Dosage: 3.95 MILLIGRAM, QD
     Route: 042
     Dates: start: 20190425, end: 20210630
  2. TEDUGLUTIDE [Suspect]
     Active Substance: TEDUGLUTIDE
     Indication: Short-bowel syndrome
     Dosage: 3.95 MILLIGRAM, QD
     Route: 042
     Dates: start: 20190425, end: 20210630
  3. TEDUGLUTIDE [Suspect]
     Active Substance: TEDUGLUTIDE
     Indication: Short-bowel syndrome
     Dosage: 3.95 MILLIGRAM, QD
     Route: 042
     Dates: start: 20190425, end: 20210630
  4. TEDUGLUTIDE [Suspect]
     Active Substance: TEDUGLUTIDE
     Indication: Short-bowel syndrome
     Dosage: 3.95 MILLIGRAM, QD
     Route: 042
     Dates: start: 20190425, end: 20210630
  5. TEDUGLUTIDE [Suspect]
     Active Substance: TEDUGLUTIDE
     Dosage: 1.9 MILLIGRAM, QD
     Route: 042
     Dates: start: 20210630, end: 20210727
  6. TEDUGLUTIDE [Suspect]
     Active Substance: TEDUGLUTIDE
     Dosage: 1.9 MILLIGRAM, QD
     Route: 042
     Dates: start: 20210630, end: 20210727
  7. TEDUGLUTIDE [Suspect]
     Active Substance: TEDUGLUTIDE
     Dosage: 1.9 MILLIGRAM, QD
     Route: 042
     Dates: start: 20210630, end: 20210727
  8. TEDUGLUTIDE [Suspect]
     Active Substance: TEDUGLUTIDE
     Dosage: 1.9 MILLIGRAM, QD
     Route: 042
     Dates: start: 20210630, end: 20210727
  9. TEDUGLUTIDE [Suspect]
     Active Substance: TEDUGLUTIDE
     Dosage: 3.6 MILLIGRAM, QD
     Route: 042
     Dates: start: 20210728
  10. TEDUGLUTIDE [Suspect]
     Active Substance: TEDUGLUTIDE
     Dosage: 3.6 MILLIGRAM, QD
     Route: 042
     Dates: start: 20210728
  11. TEDUGLUTIDE [Suspect]
     Active Substance: TEDUGLUTIDE
     Dosage: 3.6 MILLIGRAM, QD
     Route: 042
     Dates: start: 20210728
  12. TEDUGLUTIDE [Suspect]
     Active Substance: TEDUGLUTIDE
     Dosage: 3.6 MILLIGRAM, QD
     Route: 042
     Dates: start: 20210728
  13. FERINJECT [Concomitant]
     Active Substance: FERRIC CARBOXYMALTOSE
     Indication: Microcytic anaemia
     Dosage: 1 GRAM, MONTHLY
     Route: 042
     Dates: start: 20201211, end: 20210111
  14. FERINJECT [Concomitant]
     Active Substance: FERRIC CARBOXYMALTOSE
     Indication: Iron deficiency
     Dosage: 1 GRAM
     Route: 042
     Dates: start: 20210816, end: 20210816
  15. FERINJECT [Concomitant]
     Active Substance: FERRIC CARBOXYMALTOSE
     Indication: Iron deficiency anaemia
     Dosage: 1 GRAM, MONTHLY
     Route: 042
     Dates: start: 20201211, end: 20210111
  16. FERINJECT [Concomitant]
     Active Substance: FERRIC CARBOXYMALTOSE
     Indication: Anaemia
     Dosage: 1 GRAM
     Route: 042
     Dates: start: 20201211, end: 20201211
  17. FERINJECT [Concomitant]
     Active Substance: FERRIC CARBOXYMALTOSE
     Dosage: 1 GRAM
     Route: 042
     Dates: start: 20210712, end: 20210712
  18. FERINJECT [Concomitant]
     Active Substance: FERRIC CARBOXYMALTOSE
     Dosage: 1 GRAM
     Route: 042
     Dates: start: 20211228, end: 20211228
  19. FERINJECT [Concomitant]
     Active Substance: FERRIC CARBOXYMALTOSE
     Dosage: 1 GRAM
     Route: 042
     Dates: start: 20220127, end: 20220127
  20. BETAHISTINE HYDROCHLORIDE [Concomitant]
     Active Substance: BETAHISTINE HYDROCHLORIDE
     Indication: Vertigo
     Dosage: 8 GRAM, TID
     Route: 048
     Dates: start: 20201212, end: 20201213
  21. BETAHISTINE HYDROCHLORIDE [Concomitant]
     Active Substance: BETAHISTINE HYDROCHLORIDE
     Indication: Dizziness
  22. VIRIREC [Concomitant]
     Indication: Erectile dysfunction
     Dosage: 3.00 MILLIGRAM, PRN
     Route: 061
     Dates: start: 20190717
  23. METAMIZOLE MAGNESIUM [Concomitant]
     Active Substance: METAMIZOLE MAGNESIUM
     Indication: Sciatica
     Dosage: 1 DOSAGE FORM, BID
     Route: 048
     Dates: start: 20200701, end: 20200809
  24. MODERNA COVID-19 VACCINE [Concomitant]
     Active Substance: ELASOMERAN
     Indication: COVID-19 immunisation
     Dosage: 1 DOSAGE FORM, SINGLE
     Route: 030
     Dates: start: 20211209, end: 20211209
  25. ASTRAZENECA COVID-19 VACCINE [Concomitant]
     Active Substance: AZD-1222
     Indication: COVID-19 immunisation
     Dosage: 1 DOSAGE FORM, SINGLE
     Route: 030
     Dates: start: 20210427, end: 20210427
  26. ASTRAZENECA COVID-19 VACCINE [Concomitant]
     Active Substance: AZD-1222
     Dosage: 1 DOSAGE FORM, SINGLE
     Route: 030
     Dates: start: 20210705, end: 20210705
  27. SANDOSTATIN LAR DEPOT [Concomitant]
     Active Substance: OCTREOTIDE ACETATE
     Indication: Stoma obstruction
     Dosage: 20 MILLIGRAM, MONTHLY
     Route: 030
     Dates: start: 20220118
  28. LOPERAMIDE HYDROCHLORIDE [Concomitant]
     Active Substance: LOPERAMIDE HYDROCHLORIDE
     Indication: Peristalsis visible
     Dosage: 4 MILLIGRAM, TID
     Route: 048
     Dates: start: 20100127
  29. LANSOPRAZOLE [Concomitant]
     Active Substance: LANSOPRAZOLE
     Indication: Gastrointestinal disorder prophylaxis
     Dosage: 30 MILLIGRAM, QD
     Route: 048
     Dates: start: 20100127
  30. GEMFIBROZIL [Concomitant]
     Active Substance: GEMFIBROZIL
     Indication: Hypertriglyceridaemia
     Dosage: 600 MILLIGRAM, QD
     Route: 048
     Dates: start: 20111025
  31. Magnesio [Concomitant]
     Indication: Prophylaxis
     Dosage: UNK UNK, QD
     Route: 048
     Dates: start: 20100914, end: 20200718
  32. CALCIUM CARBONATE\CHOLECALCIFEROL [Concomitant]
     Active Substance: CALCIUM CARBONATE\CHOLECALCIFEROL
     Indication: Prophylaxis
     Dosage: UNK UNK, QD
     Route: 048
     Dates: start: 20111025
  33. CALCIFEDIOL [Concomitant]
     Active Substance: CALCIFEDIOL
     Indication: Treatment noncompliance
     Dosage: UNK
     Route: 048
     Dates: start: 20120920
  34. KONAKION [Concomitant]
     Active Substance: PHYTONADIONE
     Indication: Vitamin K deficiency
     Dosage: UNK
     Route: 030
     Dates: start: 20151015, end: 20190801
  35. EBASTINE [Concomitant]
     Active Substance: EBASTINE
     Indication: Urticaria chronic
     Dosage: UNK UNK, QD
     Route: 048
     Dates: start: 20100127
  36. POLARAMINE [Concomitant]
     Active Substance: DEXCHLORPHENIRAMINE MALEATE
     Indication: Urticaria chronic
     Dosage: UNK UNK, QD
     Route: 048
     Dates: start: 20100127
  37. LYRICA [Concomitant]
     Active Substance: PREGABALIN
     Indication: Sciatica
     Dosage: UNK UNK, BID
     Route: 048
     Dates: start: 20200701
  38. Ciclobenzaprina [Concomitant]
     Indication: Sciatica
     Dosage: 10 MILLIGRAM, QD
     Route: 048
     Dates: start: 20200803, end: 20201007
  39. DIAZEPAM [Concomitant]
     Active Substance: DIAZEPAM
     Indication: Sciatica
     Dosage: 5 MILLIGRAM, QD
     Route: 048
     Dates: start: 20200701, end: 20201006
  40. CODEINE PHOSPHATE [Concomitant]
     Active Substance: CODEINE PHOSPHATE
     Indication: Peristalsis visible
     Dosage: UNK UNK, TID
     Route: 048
     Dates: start: 20210608, end: 20210618
  41. CARVEDILOL [Concomitant]
     Active Substance: CARVEDILOL
     Indication: Portal hypertension
     Dosage: 6.25 MILLIGRAM, QD
     Route: 048
     Dates: start: 20220323

REACTIONS (6)
  - Stoma site haemorrhage [Recovered/Resolved]
  - Anaemia [Recovered/Resolved]
  - Vertigo [Recovered/Resolved]
  - Dizziness [Recovered/Resolved]
  - Gastrointestinal stoma output increased [Recovered/Resolved]
  - Skin mass [Not Recovered/Not Resolved]

NARRATIVE: CASE EVENT DATE: 20190828
